FAERS Safety Report 11409887 (Version 1)
Quarter: 2015Q3

REPORT INFORMATION
  Report Type: Spontaneous
  Country: US (occurrence: None)
  Receive Date: 20150820
  Receipt Date: 20150820
  Transmission Date: 20151125
  Serious: No
  Sender: FDA-Public Use
  Company Number: None

PATIENT
  Age: 62 Year
  Sex: Female

DRUGS (1)
  1. FORTEO [Suspect]
     Active Substance: TERIPARATIDE
     Dates: start: 20150424

REACTIONS (8)
  - Tendonitis [None]
  - Abnormal dreams [None]
  - Fatigue [None]
  - Nausea [None]
  - Back pain [None]
  - Depression [None]
  - Pain in extremity [None]
  - Constipation [None]

NARRATIVE: CASE EVENT DATE: 20150719
